FAERS Safety Report 7327922-6 (Version None)
Quarter: 2011Q1

REPORT INFORMATION
  Report Type: 
  Country: None (occurrence: None)
  Receive Date: 20110218
  Receipt Date: 20110202
  Transmission Date: 20110831
  Serious: Yes (Other)
  Sender: FDA-Public Use
  Company Number: 2011P1004289

PATIENT
  Age: 14 Year
  Sex: Female

DRUGS (1)
  1. SOLODYN [Suspect]

REACTIONS (2)
  - UNRESPONSIVE TO STIMULI [None]
  - CONVULSION [None]
